FAERS Safety Report 21365023 (Version 1)
Quarter: 2022Q3

REPORT INFORMATION
  Report Type: Spontaneous
  Country: US (occurrence: None)
  Receive Date: 20220922
  Receipt Date: 20220922
  Transmission Date: 20221027
  Serious: Yes (Hospitalization)
  Sender: FDA-Public Use
  Company Number: None

PATIENT
  Age: 70 Year
  Sex: Male
  Weight: 99 kg

DRUGS (14)
  1. ONPATTRO [Suspect]
     Active Substance: PATISIRAN SODIUM
     Indication: Amyloidosis
  2. ATORVASTATIN [Concomitant]
     Active Substance: ATORVASTATIN
  3. GABAPENTIN [Concomitant]
     Active Substance: GABAPENTIN
  4. LISINOPRIL [Concomitant]
     Active Substance: LISINOPRIL
  5. Melatonin 1mg tablet [Concomitant]
  6. MIRALAX [Concomitant]
     Active Substance: POLYETHYLENE GLYCOL 3350
  7. Mirtazapine 45mg tablet [Concomitant]
  8. Morphine 60mg/12hours tablet [Concomitant]
  9. Nortriptyline 75mg capsule [Concomitant]
  10. Propranolol 80mg tablet [Concomitant]
  11. Wellbutrin 300mg XL tablet [Concomitant]
  12. Zolpidem 10mg tablet [Concomitant]
  13. Vitamin D3 125mcg capsule [Concomitant]
  14. Vitamin A 10,000 unit capsule [Concomitant]

REACTIONS (7)
  - Infusion site pain [None]
  - Infusion site swelling [None]
  - Infusion site erythema [None]
  - Mental status changes [None]
  - Cellulitis [None]
  - Infusion site induration [None]
  - Infusion site pain [None]

NARRATIVE: CASE EVENT DATE: 20220905
